FAERS Safety Report 7903283-6 (Version None)
Quarter: 2011Q4

REPORT INFORMATION
  Report Type: 
  Country: None (occurrence: None)
  Receive Date: 20111109
  Receipt Date: 20111101
  Transmission Date: 20120403
  Serious: Yes (Hospitalization, Other)
  Sender: FDA-Public Use
  Company Number: JP-ASTELLAS-2011US007286

PATIENT
  Age: 56 Year
  Sex: Male
  Weight: 50 kg

DRUGS (9)
  1. ALLOPURINOL [Concomitant]
     Indication: HYPERURICAEMIA
     Dosage: 100 MG, UID/QD
     Route: 048
     Dates: start: 20010101
  2. SELBEX [Concomitant]
     Indication: GASTRITIS
     Dosage: 0.5 MG, UID/QD
     Route: 048
     Dates: start: 20010101
  3. LIPITOR [Concomitant]
     Indication: HYPERLIPIDAEMIA
     Dosage: 10 MG, UNKNOWN/D
     Route: 048
     Dates: start: 20010101
  4. OLMESARTAN MEDOXOMIL [Concomitant]
     Indication: HYPERTENSION
     Dosage: 20 MG, UID/QD
     Route: 048
     Dates: start: 20010101
  5. ERLOTINIB HYDROCHLORIDE [Suspect]
     Indication: NON-SMALL CELL LUNG CANCER
     Dosage: UNK
     Route: 048
     Dates: start: 20110803, end: 20110830
  6. LEVOFLOXACIN [Suspect]
     Indication: INFECTION PROPHYLAXIS
     Dosage: 500 MG, UID/QD
     Route: 048
     Dates: start: 20110826, end: 20110901
  7. ASPIRIN [Concomitant]
     Indication: THROMBOSIS
     Dosage: 100 MG, UNKNOWN/D
     Route: 048
     Dates: start: 20010101
  8. ERLOTINIB HYDROCHLORIDE [Suspect]
     Dosage: UNK
     Route: 048
  9. PICIBANIL [Concomitant]
     Indication: PLEURAL ADHESION
     Dosage: UNK
     Route: 038
     Dates: start: 20110823

REACTIONS (4)
  - RASH [None]
  - THROMBOCYTOPENIA [None]
  - PNEUMOTHORAX [None]
  - INFECTION [None]
